FAERS Safety Report 9054221 (Version 1)
Quarter: 2013Q1

REPORT INFORMATION
  Report Type: Report from Study
  Country: GB (occurrence: GB)
  Receive Date: 20130208
  Receipt Date: 20130208
  Transmission Date: 20140127
  Serious: Yes (Life-Threatening, Hospitalization)
  Sender: FDA-Public Use
  Company Number: GB-GLAXOSMITHKLINE-B0820603C

PATIENT
  Age: 81 None
  Sex: Female
  Weight: 70 kg

DRUGS (15)
  1. OFATUMUMAB [Suspect]
     Indication: CHRONIC LYMPHOCYTIC LEUKAEMIA
     Route: 042
     Dates: start: 20120704
  2. BENDAMUSTINE [Suspect]
     Indication: CHRONIC LYMPHOCYTIC LEUKAEMIA
     Route: 042
     Dates: start: 20120704
  3. FUROSEMIDE [Concomitant]
     Dosage: 80MG PER DAY
     Route: 048
     Dates: start: 20120530, end: 20121119
  4. AMILORIDE [Concomitant]
     Dosage: 10MG PER DAY
     Route: 048
     Dates: start: 20120530, end: 20121119
  5. CETIRIZINE [Concomitant]
     Indication: RASH
     Dosage: 10MG PER DAY
     Route: 048
     Dates: start: 20120801, end: 20120813
  6. PARACETAMOL [Concomitant]
  7. AZITHROMYCIN [Concomitant]
     Dosage: 500MG PER DAY
     Route: 048
     Dates: start: 20120801, end: 20120806
  8. CHLORPHENIRAMINE [Concomitant]
  9. OMEPRAZOLE [Concomitant]
     Dosage: 20MG PER DAY
     Route: 048
     Dates: start: 20120627, end: 20121119
  10. PREDNISOLONE [Concomitant]
     Indication: CHRONIC LYMPHOCYTIC LEUKAEMIA
     Route: 048
     Dates: start: 20120607, end: 20120704
  11. ALLOPURINOL [Concomitant]
     Indication: CHRONIC LYMPHOCYTIC LEUKAEMIA
     Route: 048
     Dates: start: 20120704
  12. FLUCONAZOLE [Concomitant]
     Indication: CHRONIC LYMPHOCYTIC LEUKAEMIA
     Dosage: 50MG PER DAY
     Route: 048
     Dates: start: 20120704, end: 20120713
  13. METOCLOPRAMIDE [Concomitant]
     Indication: CHRONIC LYMPHOCYTIC LEUKAEMIA
     Route: 048
     Dates: start: 20120704, end: 20120807
  14. ACICLOVIR [Concomitant]
  15. G-CSF [Concomitant]

REACTIONS (3)
  - Encephalitis [Not Recovered/Not Resolved]
  - Hypothyroidism [Not Recovered/Not Resolved]
  - Lower respiratory tract infection [Not Recovered/Not Resolved]
